FAERS Safety Report 5290994-7 (Version None)
Quarter: 2007Q2

REPORT INFORMATION
  Report Type: 
  Country: None (occurrence: None)
  Receive Date: 20070405
  Receipt Date: 20070405
  Transmission Date: 20071010
  Serious: Yes (Hospitalization)
  Sender: FDA-Public Use
  Company Number: None

PATIENT
  Age: 16 Year
  Sex: Female
  Weight: 60 kg

DRUGS (7)
  1. GEMCITABINE [Suspect]
     Indication: HODGKIN'S DISEASE RECURRENT
     Dosage: 1600 MILLIGRAMS ONCE A WEEK X 2 IV DRIP
     Route: 041
     Dates: start: 20070111, end: 20070322
  2. VINORELBINE [Suspect]
     Indication: HODGKIN'S DISEASE RECURRENT
     Dosage: 40 MILLIGRAMS ONCE A WEEK X 2 IV BOLUS
     Route: 040
     Dates: start: 20070111, end: 20070322
  3. ZOLOFT [Concomitant]
  4. DEPAKOTE [Concomitant]
  5. NEUPOGEN [Concomitant]
  6. BACTRIM [Concomitant]
  7. YASMIN [Concomitant]

REACTIONS (3)
  - PERICARDIAL EFFUSION [None]
  - PITTING OEDEMA [None]
  - WEIGHT INCREASED [None]
